FAERS Safety Report 4582289-1 (Version None)
Quarter: 2005Q1

REPORT INFORMATION
  Report Type: 
  Country: None (occurrence: None)
  Receive Date: 20050214
  Receipt Date: 20050201
  Transmission Date: 20050727
  Serious: Yes (Other)
  Sender: FDA-Public Use
  Company Number: IS-AMGEN-UK111059

PATIENT

DRUGS (2)
  1. ARANESP [Suspect]
     Indication: PRE-EXISTING DISEASE
     Route: 058
     Dates: start: 20040628, end: 20041012
  2. EPREX [Suspect]
     Route: 058
     Dates: start: 20040105, end: 20040628

REACTIONS (3)
  - ANTI-ERYTHROPOIETIN ANTIBODY POSITIVE [None]
  - APLASIA PURE RED CELL [None]
  - DRUG INEFFECTIVE [None]
